FAERS Safety Report 16787633 (Version 1)
Quarter: 2019Q4

REPORT INFORMATION
  Report Type: Spontaneous
  Country: US (occurrence: US)
  Receive Date: 20190909
  Receipt Date: 20190909
  Transmission Date: 20200122
  Serious: No
  Sender: FDA-Public Use
  Company Number: None

PATIENT
  Age: 65 Year
  Sex: Male
  Weight: 80.1 kg

DRUGS (5)
  1. CRESTOR [Concomitant]
     Active Substance: ROSUVASTATIN CALCIUM
  2. TADALAFIL TABLETS USP [Suspect]
     Active Substance: TADALAFIL
     Indication: BENIGN PROSTATIC HYPERPLASIA
     Dosage: ?          QUANTITY:30 TABLET(S);?
     Route: 048
     Dates: start: 20190901, end: 20190909
  3. CLONIDINE. [Concomitant]
     Active Substance: CLONIDINE
  4. PREVICID [Concomitant]
  5. CIALIS [Concomitant]
     Active Substance: TADALAFIL

REACTIONS (4)
  - Product quality issue [None]
  - Drug ineffective [None]
  - Product substitution issue [None]
  - Nocturia [None]

NARRATIVE: CASE EVENT DATE: 20190902
